FAERS Safety Report 15300931 (Version 1)
Quarter: 2018Q3

REPORT INFORMATION
  Report Type: Spontaneous
  Country: US (occurrence: US)
  Receive Date: 20180808
  Receipt Date: 20180808
  Transmission Date: 20181010
  Serious: Yes (Life-Threatening)
  Sender: FDA-Public Use
  Company Number: None

PATIENT
  Age: 89 Year
  Sex: Male
  Weight: 82.1 kg

DRUGS (5)
  1. JARDIANCE [Suspect]
     Active Substance: EMPAGLIFLOZIN
     Indication: BLOOD GLUCOSE ABNORMAL
     Dates: start: 201803, end: 20180729
  2. METFORMIN [Concomitant]
     Active Substance: METFORMIN HYDROCHLORIDE
  3. LISINOPRIL. [Concomitant]
     Active Substance: LISINOPRIL
  4. GLIPIZIDE. [Concomitant]
     Active Substance: GLIPIZIDE
  5. SIMVASTATIN. [Concomitant]
     Active Substance: SIMVASTATIN

REACTIONS (12)
  - Pollakiuria [None]
  - Memory impairment [None]
  - Somnolence [None]
  - Asthenia [None]
  - Impaired driving ability [None]
  - Decreased appetite [None]
  - Physical assault [None]
  - Suicide attempt [None]
  - Abdominal pain lower [None]
  - Dizziness [None]
  - Mood altered [None]
  - Frequent bowel movements [None]

NARRATIVE: CASE EVENT DATE: 201803
